FAERS Safety Report 5910087-2 (Version None)
Quarter: 2008Q4

REPORT INFORMATION
  Report Type: 
  Country: None (occurrence: None)
  Receive Date: 20081007
  Receipt Date: 20070905
  Transmission Date: 20090506
  Serious: No
  Sender: FDA-Public Use
  Company Number: US-ASTRAZENECA-2007UW21103

PATIENT
  Age: 66 Year
  Sex: Female

DRUGS (10)
  1. ARIMIDEX [Suspect]
     Indication: BREAST CANCER
     Route: 048
  2. ARIMIDEX [Suspect]
     Route: 048
  3. ARIMIDEX [Suspect]
     Route: 048
  4. SYNTHROID [Concomitant]
  5. ZOMETA [Concomitant]
  6. COD LIVER OIL [Concomitant]
  7. FLAX SEED [Concomitant]
  8. ASPIRIN [Concomitant]
  9. TYLENOL (CAPLET) [Concomitant]
  10. ADVIL [Concomitant]

REACTIONS (4)
  - ARTHRALGIA [None]
  - DIZZINESS [None]
  - HOT FLUSH [None]
  - MOOD SWINGS [None]
